FAERS Safety Report 25047247 (Version 1)
Quarter: 2025Q1

REPORT INFORMATION
  Report Type: Spontaneous
  Country: AU (occurrence: AU)
  Receive Date: 20250306
  Receipt Date: 20250306
  Transmission Date: 20250409
  Serious: Yes (Other)
  Sender: SANOFI AVENTIS
  Company Number: AU-SA-2025SA065064

PATIENT
  Age: 41 Year
  Sex: Female

DRUGS (3)
  1. FLUVOXAMINE MALEATE [Suspect]
     Active Substance: FLUVOXAMINE MALEATE
     Indication: Major depression
     Route: 048
     Dates: start: 20060401
  2. FLUVOXAMINE MALEATE [Suspect]
     Active Substance: FLUVOXAMINE MALEATE
     Indication: Anxiety disorder
  3. IRBESARTAN [Suspect]
     Active Substance: IRBESARTAN
     Indication: Hypertension
     Route: 048
     Dates: start: 20030201

REACTIONS (1)
  - Gastrooesophageal reflux disease [Recovered/Resolved]

NARRATIVE: CASE EVENT DATE: 20060701
